FAERS Safety Report 5394012-1 (Version None)
Quarter: 2007Q3

REPORT INFORMATION
  Report Type: 
  Country: None (occurrence: None)
  Receive Date: 20070723
  Receipt Date: 20070110
  Transmission Date: 20080115
  Serious: No
  Sender: FDA-Public Use
  Company Number: A0635194A

PATIENT

DRUGS (10)
  1. AVANDIA [Suspect]
     Route: 048
  2. ZOLOFT [Concomitant]
  3. COZAAR [Concomitant]
  4. CALTRATE [Concomitant]
  5. ASPIRIN [Concomitant]
  6. NORVASK [Concomitant]
  7. LIPITOR [Concomitant]
  8. ARANESP [Concomitant]
  9. INSULIN [Concomitant]
  10. FENTANYL TRANSDERMAL SYSTEM [Concomitant]

REACTIONS (4)
  - ANOREXIA [None]
  - ASTHENIA [None]
  - FLUID RETENTION [None]
  - MALAISE [None]
